FAERS Safety Report 17306083 (Version 2)
Quarter: 2025Q3

REPORT INFORMATION
  Report Type: Spontaneous
  Country: EU (occurrence: EU)
  Receive Date: 20200123
  Receipt Date: 20250918
  Transmission Date: 20251021
  Serious: Yes (Other)
  Sender: AUROBINDO
  Company Number: EU-UCBSA-2019052478

PATIENT
  Age: 27 Year
  Sex: Male

DRUGS (4)
  1. LEVETIRACETAM [Suspect]
     Active Substance: LEVETIRACETAM
     Indication: Seizure
     Dosage: 3000 MILLIGRAM, ONCE A DAY
     Route: 065
  2. LEVETIRACETAM [Suspect]
     Active Substance: LEVETIRACETAM
     Route: 042
  3. DIAZEPAM [Concomitant]
     Active Substance: DIAZEPAM
     Indication: Seizure
     Route: 042
  4. VIGABATRIN [Concomitant]
     Active Substance: VIGABATRIN
     Indication: Seizure
     Dosage: 1500 MILLIGRAM, ONCE A DAY
     Route: 065

REACTIONS (7)
  - Gastrointestinal infection [Recovered/Resolved]
  - Therapeutic product effect incomplete [Unknown]
  - Cognitive disorder [Unknown]
  - Malaise [Unknown]
  - Vomiting [Recovered/Resolved]
  - Behaviour disorder [Recovered/Resolved]
  - Diarrhoea [Recovered/Resolved]
